FAERS Safety Report 12271054 (Version 2)
Quarter: 2016Q2

REPORT INFORMATION
  Report Type: Spontaneous
  Country: CN (occurrence: CN)
  Receive Date: 20160415
  Receipt Date: 20160415
  Transmission Date: 20160815
  Serious: Yes (Death)
  Sender: FDA-Public Use
  Company Number: CN-WATSON-2016-07456

PATIENT
  Age: 44 Year
  Sex: Female

DRUGS (6)
  1. DOCETAXEL (UNKNOWN) [Suspect]
     Active Substance: DOCETAXEL
     Indication: INVASIVE DUCTAL BREAST CARCINOMA
     Dosage: DAY 1, EVERY 3 WEEKS FOR 2 CYCLES
     Route: 065
     Dates: start: 201310
  2. VINORELBINE [Suspect]
     Active Substance: VINORELBINE\VINORELBINE TARTRATE
     Indication: INVASIVE DUCTAL BREAST CARCINOMA
     Dosage: DAYS 1 AND 8, EVERY 3 WEEKS
     Route: 065
  3. CISPLATIN. [Concomitant]
     Active Substance: CISPLATIN
     Indication: INVASIVE DUCTAL BREAST CARCINOMA
     Dosage: UNK
     Route: 038
  4. GEMCITABINE [Suspect]
     Active Substance: GEMCITABINE\GEMCITABINE HYDROCHLORIDE
     Indication: INVASIVE DUCTAL BREAST CARCINOMA
     Dosage: DAYS 1 AND 8, EVERY 3 WEEKS FOR 2 CYCLES
     Route: 065
     Dates: start: 201310
  5. CARBOPLATIN (UNKNOWN) [Suspect]
     Active Substance: CARBOPLATIN
     Indication: INVASIVE DUCTAL BREAST CARCINOMA
     Dosage: DAY 1, EVERY 3 WEEKS
     Route: 065
  6. CISPLATIN. [Concomitant]
     Active Substance: CISPLATIN
     Route: 033

REACTIONS (1)
  - Drug ineffective [Fatal]
